FAERS Safety Report 25434326 (Version 1)
Quarter: 2025Q2

REPORT INFORMATION
  Report Type: Spontaneous
  Country: US (occurrence: US)
  Receive Date: 20250613
  Receipt Date: 20250613
  Transmission Date: 20250717
  Serious: No
  Sender: UNITED EXCHANGE
  Company Number: US-United Exchange Corporation-2178661

PATIENT
  Sex: Male

DRUGS (1)
  1. CVS MEDICATED HEAT [Suspect]
     Active Substance: CAPSICUM
     Indication: Pain
     Dates: start: 20250402, end: 20250402

REACTIONS (1)
  - Hypersensitivity [Unknown]

NARRATIVE: CASE EVENT DATE: 20250402
